FAERS Safety Report 4990460-X (Version None)
Quarter: 2006Q2

REPORT INFORMATION
  Report Type: 
  Country: None (occurrence: None)
  Receive Date: 20060503
  Receipt Date: 20060303
  Transmission Date: 20061013
  Serious: No
  Sender: FDA-Public Use
  Company Number: US-BRACCO-BDI-008003

PATIENT
  Sex: Female

DRUGS (1)
  1. ISOVUE-128 [Suspect]
     Route: 050
     Dates: start: 20060302, end: 20060302

REACTIONS (2)
  - NAUSEA [None]
  - VOMITING [None]
